FAERS Safety Report 10735437 (Version 5)
Quarter: 2015Q2

REPORT INFORMATION
  Report Type: Spontaneous
  Country: JP (occurrence: JP)
  Receive Date: 20150126
  Receipt Date: 20150406
  Transmission Date: 20150821
  Serious: Yes (Life-Threatening)
  Sender: FDA-Public Use
  Company Number: JP-ROCHE-1525127

PATIENT
  Age: 72 Year
  Sex: Female
  Weight: 50 kg

DRUGS (2)
  1. MIRCERA [Suspect]
     Active Substance: METHOXY POLYETHYLENE GLYCOL-EPOETIN BETA
     Indication: NEPHROGENIC ANAEMIA
     Route: 058
     Dates: start: 201409, end: 201411
  2. ACTEMRA [Suspect]
     Active Substance: TOCILIZUMAB
     Indication: RHEUMATOID ARTHRITIS
     Dosage: DOSAGE UNCERTAIN.
     Route: 041
     Dates: start: 20100617, end: 20141023

REACTIONS (1)
  - Aplasia pure red cell [Recovered/Resolved]

NARRATIVE: CASE EVENT DATE: 20141118
